FAERS Safety Report 8140843-4 (Version None)
Quarter: 2012Q1

REPORT INFORMATION
  Report Type: 
  Country: None (occurrence: None)
  Receive Date: 20120216
  Receipt Date: 20120216
  Transmission Date: 20120608
  Serious: Yes (Hospitalization, Other)
  Sender: FDA-Public Use
  Company Number: US-JNJFOC-20120203209

PATIENT
  Sex: Male

DRUGS (3)
  1. REMICADE [Suspect]
     Indication: PRODUCT USED FOR UNKNOWN INDICATION
     Dosage: FIRST INFUSION
     Route: 042
  2. LIALDA [Concomitant]
     Route: 065
  3. MULTI-VITAMINS [Concomitant]
     Route: 065

REACTIONS (8)
  - TYPE IV HYPERSENSITIVITY REACTION [None]
  - RASH [None]
  - HEADACHE [None]
  - PYREXIA [None]
  - GASTROINTESTINAL INFECTION [None]
  - ARTHRALGIA [None]
  - DECREASED APPETITE [None]
  - GUILLAIN-BARRE SYNDROME [None]
